FAERS Safety Report 12293785 (Version 12)
Quarter: 2017Q1

REPORT INFORMATION
  Report Type: Report from Study
  Country: AU (occurrence: AU)
  Receive Date: 20160421
  Receipt Date: 20170301
  Transmission Date: 20170428
  Serious: Yes (Hospitalization, Other)
  Sender: FDA-Public Use
  Company Number: AU-ALEXION PHARMACEUTICALS INC-A201602806

PATIENT
  Age: 16 Year
  Sex: Male
  Weight: 73 kg

DRUGS (4)
  1. ARANESP [Concomitant]
     Active Substance: DARBEPOETIN ALFA
     Indication: PRODUCT USED FOR UNKNOWN INDICATION
     Route: 065
  2. SOLIRIS [Suspect]
     Active Substance: ECULIZUMAB
     Indication: HAEMOLYTIC URAEMIC SYNDROME
     Dosage: 900 MG, QW
     Route: 042
     Dates: start: 20160324, end: 20160415
  3. SOLIRIS [Suspect]
     Active Substance: ECULIZUMAB
     Dosage: 1200 MG, Q2W
     Route: 042
     Dates: start: 20160422, end: 20170109
  4. SOLIRIS [Suspect]
     Active Substance: ECULIZUMAB
     Dosage: 1200 MG, Q3W
     Route: 042
     Dates: start: 20170131

REACTIONS (20)
  - Blood lactate dehydrogenase increased [Recovering/Resolving]
  - Heart rate increased [Recovered/Resolved]
  - Headache [Recovering/Resolving]
  - Neck pain [Recovered/Resolved]
  - Dyspnoea [Unknown]
  - Platelet count decreased [Recovering/Resolving]
  - Blood pressure increased [Unknown]
  - Umbilical hernia [Recovering/Resolving]
  - Heart rate abnormal [Recovered/Resolved with Sequelae]
  - Vomiting [Recovered/Resolved]
  - Fluid overload [Recovered/Resolved]
  - Haemoglobin decreased [Recovering/Resolving]
  - Dyspnoea [Recovered/Resolved]
  - Hypertension [Recovered/Resolved]
  - Malaise [Unknown]
  - Blood creatinine abnormal [Recovering/Resolving]
  - Inappropriate schedule of drug administration [Not Recovered/Not Resolved]
  - Fluid overload [Recovered/Resolved]
  - Blood creatinine increased [Not Recovered/Not Resolved]
  - Renal impairment [Unknown]

NARRATIVE: CASE EVENT DATE: 20160411
